FAERS Safety Report 12283740 (Version 1)
Quarter: 2016Q2

REPORT INFORMATION
  Report Type: Spontaneous
  Country: US (occurrence: US)
  Receive Date: 20160419
  Receipt Date: 20160419
  Transmission Date: 20160815
  Serious: No
  Sender: FDA-Public Use
  Company Number: US-BANPHARM-20154264

PATIENT
  Age: 67 Year
  Sex: Female
  Weight: 81.19 kg

DRUGS (5)
  1. ACID CONTROL [Concomitant]
     Active Substance: FAMOTIDINE
  2. ALEVE [Suspect]
     Active Substance: NAPROXEN SODIUM
     Indication: ARTHRITIS
     Dosage: DF 1-3,
     Route: 048
     Dates: start: 2012
  3. ALEVE [Suspect]
     Active Substance: NAPROXEN SODIUM
  4. VITAMINS [Concomitant]
     Active Substance: VITAMINS
  5. BLOOD THINNER [Concomitant]
     Active Substance: UNSPECIFIED INGREDIENT

REACTIONS (3)
  - Intentional product use issue [None]
  - Therapeutic response unexpected [Unknown]
  - Product use issue [Unknown]
